FAERS Safety Report 9336476 (Version 1)
Quarter: 2013Q2

REPORT INFORMATION
  Report Type: Spontaneous
  Country: US (occurrence: US)
  Receive Date: 20130607
  Receipt Date: 20130607
  Transmission Date: 20140414
  Serious: Yes (Death, Life-Threatening, Hospitalization)
  Sender: FDA-Public Use
  Company Number: US-BAYER-2013-069712

PATIENT
  Age: 15 Year
  Sex: Female

DRUGS (2)
  1. ACETYLSALICYLIC ACID [Suspect]
     Indication: PAIN MANAGEMENT
  2. ACETYLSALICYLIC ACID [Suspect]
     Indication: ABDOMINAL PAIN

REACTIONS (6)
  - Peritoneal haemorrhage [None]
  - Shock haemorrhagic [Fatal]
  - Abdominal compartment syndrome [Not Recovered/Not Resolved]
  - Metabolic disorder [Not Recovered/Not Resolved]
  - Disseminated intravascular coagulation [Fatal]
  - Cardiac arrest [Fatal]
